FAERS Safety Report 20620526 (Version 1)
Quarter: 2022Q1

REPORT INFORMATION
  Report Type: Other
  Country: US (occurrence: US)
  Receive Date: 20220322
  Receipt Date: 20220322
  Transmission Date: 20220423
  Serious: Yes (Hospitalization, Other)
  Sender: FDA-Public Use
  Company Number: None

PATIENT
  Age: 54 Year
  Sex: Male

DRUGS (1)
  1. PENICILLIN G [Suspect]
     Active Substance: PENICILLIN G
     Indication: Neurosyphilis
     Dosage: 24 MILION UNITS DAILY FOR 14 DAYS
     Route: 042

REACTIONS (6)
  - Drug ineffective [None]
  - Abnormal behaviour [None]
  - Disturbance in attention [None]
  - Agitation [None]
  - Hallucination [None]
  - Nervous system disorder [None]
